FAERS Safety Report 6603953-6 (Version None)
Quarter: 2010Q1

REPORT INFORMATION
  Report Type: 
  Country: None (occurrence: None)
  Receive Date: 20100226
  Receipt Date: 20090324
  Transmission Date: 20100710
  Serious: No
  Sender: FDA-Public Use
  Company Number: A0775635A

PATIENT
  Sex: Male

DRUGS (2)
  1. LAMICTAL CD [Suspect]
     Indication: DRUG USE FOR UNKNOWN INDICATION
     Route: 048
  2. DEPAKOTE [Concomitant]

REACTIONS (1)
  - TREMOR [None]
